FAERS Safety Report 18376008 (Version 1)
Quarter: 2020Q4

REPORT INFORMATION
  Report Type: Spontaneous
  Country: US (occurrence: US)
  Receive Date: 20201013
  Receipt Date: 20201013
  Transmission Date: 20210114
  Serious: No
  Sender: FDA-Public Use
  Company Number: US-BRISTOL-MYERS SQUIBB COMPANY-BMS-2020-081923

PATIENT
  Sex: Female

DRUGS (1)
  1. COUMADIN [Suspect]
     Active Substance: WARFARIN SODIUM
     Indication: PULMONARY EMBOLISM
     Dosage: TAKE IT 3 TABLETS TIMES A DAY BUT SHE TAKES 3 TABS AT NIGHT TIME
     Route: 048

REACTIONS (2)
  - Laboratory test abnormal [Unknown]
  - Weight fluctuation [Unknown]
